FAERS Safety Report 11589847 (Version 1)
Quarter: 2015Q4

REPORT INFORMATION
  Report Type: Spontaneous
  Country: US (occurrence: US)
  Receive Date: 20151002
  Receipt Date: 20151002
  Transmission Date: 20160304
  Serious: Yes (Hospitalization, Other)
  Sender: FDA-Public Use
  Company Number: US-GLAXOSMITHKLINE-US2015139847

PATIENT
  Age: 76 Year
  Sex: Female

DRUGS (6)
  1. ADVAIR DISKUS [Suspect]
     Active Substance: FLUTICASONE PROPIONATE\SALMETEROL XINAFOATE
     Indication: CHRONIC OBSTRUCTIVE PULMONARY DISEASE
     Dosage: 1 PUFF(S), BID
     Route: 055
  2. BENZONATATE. [Concomitant]
     Active Substance: BENZONATATE
  3. VENTOLIN HFA [Concomitant]
     Active Substance: ALBUTEROL SULFATE
  4. VITAMIN D [Concomitant]
     Active Substance: CHOLECALCIFEROL
  5. TRAZODONE [Suspect]
     Active Substance: TRAZODONE HYDROCHLORIDE
     Indication: SLEEP DISORDER
     Dosage: 500 MG, 1D
     Route: 048
  6. LEVITIRACETAM [Concomitant]
     Active Substance: LEVETIRACETAM

REACTIONS (5)
  - Cerebrovascular accident [Recovered/Resolved]
  - Seizure [Recovered/Resolved]
  - Dysgeusia [Not Recovered/Not Resolved]
  - Scar [Unknown]
  - Surgery [Unknown]

NARRATIVE: CASE EVENT DATE: 201404
